FAERS Safety Report 7580090-8 (Version None)
Quarter: 2011Q2

REPORT INFORMATION
  Report Type: 
  Country: None (occurrence: None)
  Receive Date: 20110622
  Receipt Date: 20110621
  Transmission Date: 20111010
  Serious: Yes (Hospitalization)
  Sender: FDA-Public Use
  Company Number: SP03755

PATIENT
  Age: 67 Year
  Sex: Female

DRUGS (1)
  1. MOVIPREP [Suspect]
     Indication: BOWEL PREPARATION
     Dosage: ORAL
     Route: 048
     Dates: start: 20090101, end: 20090101

REACTIONS (1)
  - MENIERE'S DISEASE [None]
